FAERS Safety Report 21581631 (Version 2)
Quarter: 2022Q4

REPORT INFORMATION
  Report Type: Spontaneous
  Country: US (occurrence: US)
  Receive Date: 20221111
  Receipt Date: 20221201
  Transmission Date: 20230112
  Serious: No
  Sender: FDA-Public Use
  Company Number: US-ViiV Healthcare Limited-87487

PATIENT
  Sex: Male

DRUGS (9)
  1. CABENUVA [Suspect]
     Active Substance: CABOTEGRAVIR\RILPIVIRINE
     Indication: HIV infection
     Dosage: UNK, (FIRST DOSE), 600/900
     Route: 030
     Dates: start: 20220328
  2. CABENUVA [Suspect]
     Active Substance: CABOTEGRAVIR\RILPIVIRINE
     Dosage: UNK UNK, ZEVERY 2 MONTHS (SECOND DOSE),600/900
     Route: 030
     Dates: start: 20220427
  3. CABENUVA [Suspect]
     Active Substance: CABOTEGRAVIR\RILPIVIRINE
     Dosage: UNK UNK, ZEVERY 2 MONTHS (THIRD DOSE),600/900
     Route: 030
     Dates: start: 20220624
  4. CABENUVA [Suspect]
     Active Substance: CABOTEGRAVIR\RILPIVIRINE
     Dosage: UNK UNK, ZEVERY 2 MONTHS (FOURTH DOSE),600/900
     Route: 030
     Dates: start: 20220812
  5. CABENUVA [Suspect]
     Active Substance: CABOTEGRAVIR\RILPIVIRINE
     Dosage: UNK UNK, ZEVERY 2 MONTHS (FIFTH DOSE),600/900
     Route: 030
     Dates: start: 20221004
  6. CABENUVA [Suspect]
     Active Substance: CABOTEGRAVIR\RILPIVIRINE
     Dosage: UNK UNK, Z(MONTHLY)400/600
     Route: 030
     Dates: start: 20221111
  7. TRIUMEQ [Concomitant]
     Active Substance: ABACAVIR SULFATE\DOLUTEGRAVIR SODIUM\LAMIVUDINE
     Indication: HIV infection
     Dosage: UNK
     Dates: start: 20170801
  8. VOCABRIA [Concomitant]
     Active Substance: CABOTEGRAVIR SODIUM
     Indication: HIV infection
     Dosage: UNK
     Route: 048
     Dates: start: 20220226, end: 20220328
  9. EDURANT [Concomitant]
     Active Substance: RILPIVIRINE HYDROCHLORIDE
     Indication: HIV infection
     Dosage: UNK
     Route: 048
     Dates: start: 20220226, end: 20220328

REACTIONS (4)
  - Viraemia [Unknown]
  - Blood HIV RNA increased [Unknown]
  - Weight decreased [Unknown]
  - Therapeutic response unexpected [Unknown]

NARRATIVE: CASE EVENT DATE: 20220101
